FAERS Safety Report 7070599-8 (Version None)
Quarter: 2010Q4

REPORT INFORMATION
  Report Type: 
  Country: None (occurrence: None)
  Receive Date: 20101029
  Receipt Date: 20101019
  Transmission Date: 20110411
  Serious: Yes (Life-Threatening, Hospitalization, Other)
  Sender: FDA-Public Use
  Company Number: JP-PFIZER INC-2010119839

PATIENT
  Age: 83 Year
  Sex: Male
  Weight: 50 kg

DRUGS (10)
  1. AZULFIDINE [Suspect]
     Indication: RHEUMATOID ARTHRITIS
     Dosage: 500 MG, 2X/DAY
     Route: 048
     Dates: end: 20100912
  2. RHEUMATREX [Suspect]
     Indication: RHEUMATOID ARTHRITIS
     Dosage: UNK
     Route: 048
     Dates: end: 20100912
  3. LAFUTIDINE [Suspect]
     Dosage: 10 MG, 2X/DAY
     Route: 048
     Dates: end: 20100912
  4. ADALAT CC [Concomitant]
     Dosage: 1 DF, 1X/DAY
     Route: 048
     Dates: end: 20100912
  5. SENNOSIDE A [Concomitant]
     Dosage: 1 DF, 1X/DAY
     Route: 048
     Dates: end: 20100912
  6. CYANOCOBALAMIN [Concomitant]
     Dosage: 0.5 MG, 2X/DAY
     Route: 048
     Dates: end: 20100912
  7. MUCOSTA [Concomitant]
     Dosage: 1 DF, 2X/DAY
     Route: 048
     Dates: end: 20100912
  8. PLAVIX [Concomitant]
     Dosage: 1 DF, 3X/DAY
     Route: 048
     Dates: end: 20100912
  9. OXYCONTIN [Concomitant]
     Dosage: 5 MG, 2X/DAY
     Route: 048
     Dates: start: 20100830, end: 20100912
  10. CALONAL [Concomitant]
     Dosage: 400 MG, 2X/DAY
     Route: 048
     Dates: start: 20100905, end: 20100912

REACTIONS (9)
  - ASTHENIA [None]
  - DISSEMINATED INTRAVASCULAR COAGULATION [None]
  - HYPOPHAGIA [None]
  - PANCYTOPENIA [None]
  - PAROTID ABSCESS [None]
  - PYREXIA [None]
  - SOMNOLENCE [None]
  - URINE OUTPUT DECREASED [None]
  - VOMITING [None]
